FAERS Safety Report 6824377-2 (Version None)
Quarter: 2010Q3

REPORT INFORMATION
  Report Type: 
  Country: None (occurrence: None)
  Receive Date: 20100708
  Receipt Date: 20061023
  Transmission Date: 20110219
  Serious: No
  Sender: FDA-Public Use
  Company Number: US-PFIZER INC-2006131614

PATIENT
  Sex: Female
  Weight: 54.43 kg

DRUGS (7)
  1. CHANTIX [Suspect]
     Indication: SMOKING CESSATION THERAPY
     Route: 048
     Dates: start: 20060901
  2. LEXAPRO [Concomitant]
  3. BUSPIRONE HCL [Concomitant]
  4. ADVAIR DISKUS 100/50 [Concomitant]
     Indication: EMPHYSEMA
  5. SPIRIVA [Concomitant]
  6. MOTRIN [Concomitant]
     Indication: PAIN
  7. HYDROCODONE BITARTRATE [Concomitant]
     Indication: PAIN

REACTIONS (3)
  - ABDOMINAL DISTENSION [None]
  - FLATULENCE [None]
  - NAUSEA [None]
